FAERS Safety Report 21137448 (Version 1)
Quarter: 2022Q3

REPORT INFORMATION
  Report Type: Spontaneous
  Country: CN (occurrence: CN)
  Receive Date: 20220727
  Receipt Date: 20220727
  Transmission Date: 20221027
  Serious: Yes (Other)
  Sender: FDA-Public Use
  Company Number: CN-PFIZER INC-PV202200029041

PATIENT
  Age: 27 Year
  Sex: Female
  Weight: 56.5 kg

DRUGS (4)
  1. METHOTREXATE SODIUM [Suspect]
     Active Substance: METHOTREXATE SODIUM
     Indication: Abortion induced
     Dosage: 70 MG, 1X/DAY
     Route: 030
     Dates: start: 20220628, end: 20220628
  2. SODIUM CHLORIDE [Concomitant]
     Active Substance: SODIUM CHLORIDE
     Indication: Vehicle solution use
     Dosage: 500 ML, 1X/DAY
     Route: 041
     Dates: start: 20220627, end: 20220627
  3. DEXTROSE [Concomitant]
     Active Substance: DEXTROSE
     Indication: Fluid replacement
     Dosage: 500 ML, 1X/DAY
     Route: 041
     Dates: start: 20220627, end: 20220627
  4. OXYTOCIN [Concomitant]
     Active Substance: OXYTOCIN
     Indication: Abortion induced
     Dosage: 10 IU, 1X/DAY
     Route: 041
     Dates: start: 20220627, end: 20220627

REACTIONS (2)
  - Liver injury [Not Recovered/Not Resolved]
  - Off label use [Unknown]

NARRATIVE: CASE EVENT DATE: 20220628
